FAERS Safety Report 6677816-4 (Version None)
Quarter: 2010Q2

REPORT INFORMATION
  Report Type: 
  Country: None (occurrence: None)
  Receive Date: 20100412
  Receipt Date: 20100319
  Transmission Date: 20101027
  Serious: No
  Sender: FDA-Public Use
  Company Number: US-ALEXION-A201000333

PATIENT
  Sex: Male

DRUGS (3)
  1. SOLIRIS [Suspect]
     Indication: PAROXYSMAL NOCTURNAL HAEMOGLOBINURIA
     Dosage: 600 MG, QW
     Route: 042
     Dates: start: 20090318, end: 20090408
  2. SOLIRIS [Suspect]
     Dosage: 600 MG, QW X4W
     Route: 042
     Dates: start: 20090507, end: 20090501
  3. SOLIRIS [Suspect]
     Dosage: 900 MG, Q2W
     Route: 042
     Dates: start: 20090601

REACTIONS (8)
  - ARTHRITIS [None]
  - CHILLS [None]
  - ERYTHEMA [None]
  - INFLUENZA [None]
  - JOINT WARMTH [None]
  - NAUSEA [None]
  - PYREXIA [None]
  - VOMITING [None]
